FAERS Safety Report 8800841 (Version 1)
Quarter: 2012Q4

REPORT INFORMATION
  Report Type: 
  Country: US (occurrence: US)
  Receive Date: 20120921
  Receipt Date: 20120921
  Transmission Date: 20130627
  Serious: No
  Sender: FDA-Public Use
  Company Number: US-PFIZER INC-2012233718

PATIENT
  Age: 64 Year
  Sex: Female

DRUGS (3)
  1. EFFEXOR [Suspect]
     Indication: DEPRESSION
     Dosage: 150 mg, daily
     Route: 048
  2. SEROQUEL [Concomitant]
     Indication: DEPRESSION
     Dosage: 300 mg, daily
  3. XANAX [Concomitant]
     Indication: DEPRESSION
     Dosage: 1 mg, 3x/day

REACTIONS (1)
  - Depressed mood [Unknown]
